FAERS Safety Report 11729006 (Version 1)
Quarter: 2015Q4

REPORT INFORMATION
  Report Type: Spontaneous
  Country: FI (occurrence: FI)
  Receive Date: 20151112
  Receipt Date: 20151112
  Transmission Date: 20160304
  Serious: Yes (Hospitalization)
  Sender: FDA-Public Use
  Company Number: FI-GUERBET LLC-1044108

PATIENT
  Age: 72 Year

DRUGS (2)
  1. VENTOLINE(SALBUTAMOL) [Concomitant]
  2. DOTAREM [Suspect]
     Active Substance: GADOTERATE MEGLUMINE
     Indication: NUCLEAR MAGNETIC RESONANCE IMAGING
     Route: 042
     Dates: start: 20150915, end: 20150915

REACTIONS (6)
  - Lip swelling [Recovered/Resolved]
  - Feeling hot [Recovered/Resolved]
  - Paraesthesia [Recovered/Resolved]
  - Hypersensitivity [Recovered/Resolved]
  - Cough [Recovered/Resolved]
  - Erythema [Recovered/Resolved]

NARRATIVE: CASE EVENT DATE: 20150915
